FAERS Safety Report 5407726-1 (Version None)
Quarter: 2007Q3

REPORT INFORMATION
  Report Type: 
  Country: None (occurrence: None)
  Receive Date: 20070807
  Receipt Date: 20070726
  Transmission Date: 20080115
  Serious: Yes (Other)
  Sender: FDA-Public Use
  Company Number: US-PFIZER INC-2007063429

PATIENT

DRUGS (1)
  1. CHANTIX [Suspect]

REACTIONS (1)
  - ANAPHYLACTIC REACTION [None]
